FAERS Safety Report 10048611 (Version 2)
Quarter: 2014Q2

REPORT INFORMATION
  Report Type: Spontaneous
  Country: IT (occurrence: IT)
  Receive Date: 20140331
  Receipt Date: 20140408
  Transmission Date: 20141212
  Serious: Yes (Hospitalization)
  Sender: FDA-Public Use
  Company Number: IT-WATSON-2014-05789

PATIENT
  Age: 86 Year
  Sex: Male
  Weight: 70 kg

DRUGS (7)
  1. ENALAPRIL (UNKNOWN) [Suspect]
     Indication: HYPERTENSION
     Dosage: 20 MG, DAILY
     Route: 048
     Dates: start: 20090101, end: 20140224
  2. ALLOPURINOL (UNKNOWN) [Suspect]
     Indication: GOUT
     Dosage: 100 MG, DAILY
     Route: 048
     Dates: start: 20120101, end: 20140224
  3. PRADAXA [Suspect]
     Indication: ATRIAL FIBRILLATION
     Dosage: 220 MG, DAILY
     Route: 048
     Dates: start: 20130701, end: 20140224
  4. LASIX                              /00032601/ [Concomitant]
     Indication: PRODUCT USED FOR UNKNOWN INDICATION
     Dosage: 100 MG, UNK
     Route: 048
     Dates: start: 20120101, end: 20140224
  5. ALDACTONE                          /00006201/ [Concomitant]
     Indication: PRODUCT USED FOR UNKNOWN INDICATION
     Dosage: 25 MG, UNK
     Route: 048
     Dates: start: 20120101, end: 20140224
  6. TORVAST [Concomitant]
     Indication: PRODUCT USED FOR UNKNOWN INDICATION
     Dosage: 20 MG, UNK
     Route: 048
     Dates: start: 20120101, end: 20140224
  7. AMLODIPINE MALEATE [Concomitant]
     Indication: PRODUCT USED FOR UNKNOWN INDICATION
     Dosage: 10 MG, UNK
     Route: 048
     Dates: start: 20120101, end: 20140224

REACTIONS (2)
  - Eczema [Recovered/Resolved]
  - Pruritus [Recovered/Resolved]
